FAERS Safety Report 4427281-2 (Version None)
Quarter: 2004Q3

REPORT INFORMATION
  Report Type: 
  Country: None (occurrence: None)
  Receive Date: 20040813
  Receipt Date: 20040813
  Transmission Date: 20050211
  Serious: Yes (Other)
  Sender: FDA-Public Use
  Company Number: None

PATIENT
  Age: 50 Year
  Sex: Female

DRUGS (1)
  1. IBUPROFEN [Suspect]
     Dosage: 800 MG  Q6H WHILE ORAL
     Route: 048
     Dates: start: 20040316, end: 20040406

REACTIONS (4)
  - ABDOMINAL PAIN LOWER [None]
  - FAECES DISCOLOURED [None]
  - INJURY [None]
  - MUCOUS MEMBRANE DISORDER [None]
